FAERS Safety Report 5957229-0 (Version None)
Quarter: 2008Q4

REPORT INFORMATION
  Report Type: 
  Country: None (occurrence: None)
  Receive Date: 20081118
  Receipt Date: 20081107
  Transmission Date: 20090506
  Serious: Yes (Hospitalization)
  Sender: FDA-Public Use
  Company Number: US-ELI_LILLY_AND_COMPANY-US200811001930

PATIENT
  Sex: Female

DRUGS (22)
  1. BYETTA [Suspect]
     Indication: TYPE 2 DIABETES MELLITUS
     Dosage: 5 UG, 2/D
     Route: 058
     Dates: start: 20070501, end: 20070601
  2. BYETTA [Suspect]
     Dosage: 10 UG, 2/D
     Route: 058
     Dates: start: 20070601
  3. GLYBURIDE [Concomitant]
     Indication: TYPE 2 DIABETES MELLITUS
     Dosage: 5 MG, AS NEEDED
     Dates: start: 20080623
  4. METFORMIN HCL [Concomitant]
     Dosage: 100 MG, UNK
  5. ANTI-DIABETICS [Concomitant]
     Indication: TYPE 2 DIABETES MELLITUS
     Dosage: 50 MG, UNK
  6. SINGULAIR [Concomitant]
     Indication: MULTIPLE ALLERGIES
  7. REGLAN [Concomitant]
     Indication: GASTROOESOPHAGEAL REFLUX DISEASE
  8. MS CONTIN [Concomitant]
     Indication: COMPLEX REGIONAL PAIN SYNDROME
  9. ENALAPRIL MALEATE [Concomitant]
     Indication: HYPERTENSION
  10. NORCO [Concomitant]
     Indication: COMPLEX REGIONAL PAIN SYNDROME
  11. SOMA [Concomitant]
     Indication: MUSCLE SPASMS
  12. PROTONIX [Concomitant]
     Indication: GASTROOESOPHAGEAL REFLUX DISEASE
  13. SPIRONOLACTONE [Concomitant]
     Indication: DIURETIC THERAPY
  14. ZANTAC [Concomitant]
     Indication: GASTROOESOPHAGEAL REFLUX DISEASE
  15. XANAX [Concomitant]
     Indication: ANXIETY
  16. ZOCOR [Concomitant]
  17. SYNTHROID [Concomitant]
  18. FLEXERIL [Concomitant]
     Indication: MUSCLE SPASMS
  19. VESICARE [Concomitant]
     Indication: HYPERTONIC BLADDER
  20. NEURONTIN [Concomitant]
     Indication: COMPLEX REGIONAL PAIN SYNDROME
  21. PREMARIN [Concomitant]
     Indication: MENOPAUSE
     Dosage: 0.3 MG, UNK
  22. PREMPRO [Concomitant]
     Indication: MENOPAUSE

REACTIONS (11)
  - BLOOD GLUCOSE DECREASED [None]
  - BLOOD GLUCOSE INCREASED [None]
  - BRONCHITIS [None]
  - CARDIAC INFECTION [None]
  - CONJUNCTIVITIS VIRAL [None]
  - CONVULSION [None]
  - EYE INFECTION STAPHYLOCOCCAL [None]
  - HYPERTENSION [None]
  - MYOCARDIAL INFARCTION [None]
  - PYREXIA [None]
  - RENAL FAILURE [None]
